FAERS Safety Report 7678299-8 (Version None)
Quarter: 2011Q3

REPORT INFORMATION
  Report Type: 
  Country: None (occurrence: None)
  Receive Date: 20110811
  Receipt Date: 20110808
  Transmission Date: 20111222
  Serious: Yes (Other)
  Sender: FDA-Public Use
  Company Number: PHHY2011BR71456

PATIENT
  Sex: Female

DRUGS (1)
  1. TRILEPTAL [Suspect]
     Dosage: 300 MG, UNK

REACTIONS (4)
  - VARICELLA [None]
  - PRURITUS GENERALISED [None]
  - HYPERSENSITIVITY [None]
  - RASH GENERALISED [None]
